FAERS Safety Report 25613985 (Version 1)
Quarter: 2025Q3

REPORT INFORMATION
  Report Type: Spontaneous
  Country: CN (occurrence: CN)
  Receive Date: 20250728
  Receipt Date: 20250728
  Transmission Date: 20251020
  Serious: Yes (Life-Threatening, Hospitalization)
  Sender: MACLEODS
  Company Number: CN-MLMSERVICE-20250715-PI572210-00033-1

PATIENT

DRUGS (7)
  1. CLOPIDOGREL [Suspect]
     Active Substance: CLOPIDOGREL BISULFATE
     Indication: Antiplatelet therapy
     Dosage: 75 MG 1 PER EVENING
     Route: 065
     Dates: start: 20231023
  2. ASPIRIN [Suspect]
     Active Substance: ASPIRIN
     Indication: Cerebral infarction
     Dosage: 100 MG 1/NIGHT
     Route: 065
  3. ASPIRIN [Suspect]
     Active Substance: ASPIRIN
     Indication: Antiplatelet therapy
     Route: 065
     Dates: start: 20231023
  4. Dibazole [Concomitant]
     Indication: Hypertension
     Dosage: 1 TABLET 1/DAY
     Route: 048
  5. NIACIN [Concomitant]
     Active Substance: NIACIN
     Route: 065
     Dates: start: 20231023
  6. TEGRETOL [Concomitant]
     Active Substance: CARBAMAZEPINE
     Route: 065
     Dates: start: 202406
  7. HYDROCHLOROTHIAZIDE [Concomitant]
     Active Substance: HYDROCHLOROTHIAZIDE
     Indication: Hypertension
     Dosage: 1 TABLET 1/DAY
     Route: 048

REACTIONS (3)
  - Coma [Recovered/Resolved]
  - Cerebral haemorrhage [Recovered/Resolved]
  - Cerebral haematoma [Recovered/Resolved]

NARRATIVE: CASE EVENT DATE: 20230601
